FAERS Safety Report 12803775 (Version 1)
Quarter: 2016Q4

REPORT INFORMATION
  Report Type: Spontaneous
  Country: GB (occurrence: GB)
  Receive Date: 20161003
  Receipt Date: 20161003
  Transmission Date: 20170207
  Serious: Yes (Other)
  Sender: FDA-Public Use
  Company Number: GB-FERRINGPH-2016FE05240

PATIENT

DRUGS (4)
  1. PROSTIN [Suspect]
     Active Substance: ALPROSTADIL
     Indication: FAILED INDUCTION OF LABOUR
     Dosage: 2 MG DAILY, TWO TIMES
     Route: 067
     Dates: start: 20160810, end: 20160811
  2. HUMALOG [Concomitant]
     Active Substance: INSULIN LISPRO
     Indication: PRODUCT USED FOR UNKNOWN INDICATION
     Route: 065
  3. PROPESS [Suspect]
     Active Substance: DINOPROSTONE
     Indication: FAILED INDUCTION OF LABOUR
     Route: 067
     Dates: start: 20160809, end: 20160809
  4. ASPIRIN                            /00002701/ [Concomitant]
     Active Substance: ASPIRIN
     Indication: PRODUCT USED FOR UNKNOWN INDICATION
     Dosage: COATED
     Route: 065

REACTIONS (3)
  - Depression [Recovered/Resolved]
  - Anxiety [Recovered/Resolved]
  - Crying [Recovered/Resolved]

NARRATIVE: CASE EVENT DATE: 20160811
